FAERS Safety Report 9684165 (Version 1)
Quarter: 2013Q4

REPORT INFORMATION
  Report Type: Spontaneous
  Country: US (occurrence: US)
  Receive Date: 20131112
  Receipt Date: 20131112
  Transmission Date: 20140711
  Serious: Yes (Other)
  Sender: FDA-Public Use
  Company Number: CHPA2013US016504

PATIENT
  Age: 49 Year
  Sex: Male

DRUGS (4)
  1. EXCEDRIN MIGRAINE [Suspect]
     Indication: NEURALGIA
     Dosage: 2 DF, PRN
     Route: 048
  2. EXCEDRIN MIGRAINE [Suspect]
     Indication: PAIN IN EXTREMITY
     Dosage: 2 DF, PRN
     Route: 048
  3. EXCEDRIN MIGRAINE [Suspect]
     Indication: OFF LABEL USE
  4. EXCEDRIN MIGRAINE [Suspect]
     Indication: MIGRAINE

REACTIONS (5)
  - Spinal decompression [Not Recovered/Not Resolved]
  - Pain in extremity [Not Recovered/Not Resolved]
  - Musculoskeletal pain [Not Recovered/Not Resolved]
  - Hypoaesthesia [Not Recovered/Not Resolved]
  - Therapeutic response unexpected [Unknown]
